FAERS Safety Report 8472754-9 (Version None)
Quarter: 2012Q2

REPORT INFORMATION
  Report Type: 
  Country: None (occurrence: None)
  Receive Date: 20120627
  Receipt Date: 20120625
  Transmission Date: 20120825
  Serious: Yes (Other)
  Sender: FDA-Public Use
  Company Number: PHHY2012GB054289

PATIENT
  Age: 75 Year
  Sex: Male

DRUGS (3)
  1. STALEVO 100 [Concomitant]
  2. AZILECT [Interacting]
     Indication: PARKINSON'S DISEASE
     Dosage: 1 MG, QD
     Route: 048
  3. VENLAFAXINE [Suspect]
     Dosage: 37.5 MG, QD
     Route: 048
     Dates: start: 20110901

REACTIONS (2)
  - HALLUCINATION [None]
  - DRUG INTERACTION [None]
